FAERS Safety Report 8245397-X (Version None)
Quarter: 2012Q1

REPORT INFORMATION
  Report Type: 
  Country: None (occurrence: None)
  Receive Date: 20120329
  Receipt Date: 20120322
  Transmission Date: 20120608
  Serious: Yes (Hospitalization)
  Sender: FDA-Public Use
  Company Number: PHHY2012DE018876

PATIENT
  Sex: Female
  Weight: 84 kg

DRUGS (7)
  1. METOPROLOL SUCCINATE [Concomitant]
     Indication: HYPERTENSION
     Dosage: 95 MG, PER DAY
     Route: 048
     Dates: start: 20100614
  2. SIMVASTATIN [Concomitant]
     Indication: HYPERLIPIDAEMIA
     Dosage: 50 MG, PER DAY
     Route: 048
     Dates: start: 20100614
  3. LEVOTHYROXINE SODIUM [Concomitant]
     Indication: HYPOTHYROIDISM
     Dosage: 75 UG, PER DAY
     Route: 048
     Dates: start: 20100614
  4. RAMIPRIL+HYDROCHLOROTHIAZIDE [Suspect]
     Indication: HYPERTENSION
     Dosage: 1 DF, PER DAY
     Route: 048
     Dates: start: 20110401
  5. RASILEZ HCT [Suspect]
     Indication: HYPERTENSION
     Dosage: 1 DF, PER DAY
     Route: 048
     Dates: start: 20110315, end: 20110401
  6. LEVODOPA [Concomitant]
     Indication: PARKINSON'S DISEASE
     Dosage: 10 MG, PER DAY
     Route: 048
     Dates: start: 20110614
  7. ASPIRIN [Concomitant]
     Indication: CEREBROVASCULAR ACCIDENT
     Dosage: 100 MG, PER DAY
     Route: 048
     Dates: start: 20100614

REACTIONS (2)
  - URINARY TRACT INFECTION [None]
  - MYOCARDIAL INFARCTION [None]
